FAERS Safety Report 4518098-9 (Version None)
Quarter: 2004Q4

REPORT INFORMATION
  Report Type: 
  Country: None (occurrence: None)
  Receive Date: 20041130
  Receipt Date: 20041119
  Transmission Date: 20050328
  Serious: Yes (Hospitalization)
  Sender: FDA-Public Use
  Company Number: GBWYE229924NOV04

PATIENT
  Age: 33 Year
  Sex: Female

DRUGS (3)
  1. ADVIL [Suspect]
  2. ALCOHOL (ETHANOL) [Suspect]
  3. CLOZARIL [Suspect]
     Route: 048
     Dates: start: 20030819, end: 20030820

REACTIONS (5)
  - ACCIDENTAL EXPOSURE [None]
  - BLOOD PRESSURE DECREASED [None]
  - MULTIPLE DRUG OVERDOSE INTENTIONAL [None]
  - SOMNOLENCE [None]
  - WHITE BLOOD CELL COUNT INCREASED [None]
